FAERS Safety Report 8993861 (Version 1)
Quarter: 2013Q1

REPORT INFORMATION
  Report Type: Spontaneous
  Country: US (occurrence: US)
  Receive Date: 20130102
  Receipt Date: 20130102
  Transmission Date: 20140127
  Serious: No
  Sender: FDA-Public Use
  Company Number: US-AMGEN-USASP2012083219

PATIENT
  Age: 28 Year
  Sex: Male

DRUGS (2)
  1. ENBREL [Suspect]
     Indication: PSORIATIC ARTHROPATHY
     Dosage: 50 MG, QWK
     Dates: start: 20121213
  2. METHOTREXATE [Concomitant]
     Dosage: 2.5 MG, 6 TABS WEEKLY
     Dates: start: 201210

REACTIONS (2)
  - Weight loss poor [Not Recovered/Not Resolved]
  - Headache [Not Recovered/Not Resolved]
